FAERS Safety Report 9366727 (Version 1)
Quarter: 2013Q2

REPORT INFORMATION
  Report Type: Report from Study
  Country: US (occurrence: US)
  Receive Date: 20130625
  Receipt Date: 20130625
  Transmission Date: 20140414
  Serious: Yes (Hospitalization)
  Sender: FDA-Public Use
  Company Number: US-ACTELION-A-US2010-34952

PATIENT
  Age: 68 Year
  Sex: Female

DRUGS (3)
  1. TRACLEER [Suspect]
     Indication: PULMONARY ARTERIAL HYPERTENSION
     Dosage: UNK
     Route: 048
     Dates: start: 20090202
  2. COUMADIN [Concomitant]
  3. ADCIRCA [Concomitant]

REACTIONS (10)
  - Heart rate abnormal [Unknown]
  - Cough [Unknown]
  - Atrial fibrillation [Unknown]
  - Blood glucose increased [Unknown]
  - Dizziness [Unknown]
  - Pneumonia [Unknown]
  - Cardiac failure congestive [Unknown]
  - Atrial fibrillation [Unknown]
  - Pulmonary hypertension [Unknown]
  - Dyspnoea [Unknown]
